FAERS Safety Report 4631678-5 (Version None)
Quarter: 2005Q2

REPORT INFORMATION
  Report Type: 
  Country: None (occurrence: None)
  Receive Date: 20050407
  Receipt Date: 20050401
  Transmission Date: 20051028
  Serious: Yes (Other)
  Sender: FDA-Public Use
  Company Number: 2005-BP-05408RO

PATIENT
  Sex: 0

DRUGS (1)
  1. METHOTREXATE [Suspect]
     Dosage: SEE TEXT, IU
     Route: 015

REACTIONS (10)
  - ABORTION INDUCED [None]
  - ABORTION SPONTANEOUS [None]
  - CAESAREAN SECTION [None]
  - CONGENITAL ANOMALY [None]
  - DRUG EXPOSURE DURING PREGNANCY [None]
  - HAEMANGIOMA [None]
  - JAUNDICE NEONATAL [None]
  - NEONATAL RESPIRATORY DISTRESS SYNDROME [None]
  - PREMATURE LABOUR [None]
  - TALIPES [None]
